FAERS Safety Report 19505778 (Version 1)
Quarter: 2021Q3

REPORT INFORMATION
  Report Type: Spontaneous
  Country: US (occurrence: US)
  Receive Date: 20210707
  Receipt Date: 20210707
  Transmission Date: 20211014
  Serious: No
  Sender: FDA-Public Use
  Company Number: None

PATIENT
  Age: 65 Year
  Sex: Male

DRUGS (2)
  1. C?TREPROSTINIL (2.5ML) RM 5MG/ML [Suspect]
     Active Substance: TREPROSTINIL
     Indication: PULMONARY ARTERIAL HYPERTENSION
     Dosage: ?          OTHER DOSE:20.83NG/KG/MIN;OTHER FREQUENCY:CONTINOUS;?
     Route: 058
     Dates: start: 202106
  2. C?TREPROSTINIL (2ML) RM 5MG/ML [Suspect]
     Active Substance: TREPROSTINIL
     Indication: PULMONARY ARTERIAL HYPERTENSION
     Dosage: ?          OTHER DOSE:20.83NG/KG/MIN;OTHER FREQUENCY:CONTINOUS;?
     Route: 058
     Dates: start: 202106

REACTIONS (3)
  - Pain in jaw [None]
  - Arthralgia [None]
  - Neuralgia [None]

NARRATIVE: CASE EVENT DATE: 202107
